FAERS Safety Report 13819867 (Version 1)
Quarter: 2017Q3

REPORT INFORMATION
  Report Type: Spontaneous
  Country: US (occurrence: US)
  Receive Date: 20170801
  Receipt Date: 20170801
  Transmission Date: 20171127
  Serious: No
  Sender: FDA-Public Use
  Company Number: None

PATIENT
  Age: 45 Year
  Sex: Male
  Weight: 90 kg

DRUGS (4)
  1. SALINE SPRAY [Concomitant]
     Active Substance: SODIUM CHLORIDE
  2. FLONASE [Concomitant]
     Active Substance: FLUTICASONE PROPIONATE
  3. QVAR [Suspect]
     Active Substance: BECLOMETHASONE DIPROPIONATE
     Indication: ASTHMA
     Dosage: QUANTITY:2 PUFF(S);?
     Route: 055
     Dates: start: 20170601, end: 20170801
  4. ALLERGY MED [Concomitant]

REACTIONS (1)
  - Burning sensation [None]

NARRATIVE: CASE EVENT DATE: 20170731
